FAERS Safety Report 18219540 (Version 3)
Quarter: 2020Q3

REPORT INFORMATION
  Report Type: Spontaneous
  Country: ES (occurrence: ES)
  Receive Date: 20200901
  Receipt Date: 20200928
  Transmission Date: 20201103
  Serious: Yes (Other)
  Sender: FDA-Public Use
  Company Number: ES-JNJFOC-20200810282

PATIENT
  Age: 9 Decade
  Sex: Female

DRUGS (3)
  1. DUROGESIC MATRIX [Suspect]
     Active Substance: FENTANYL
  2. DUROGESIC MATRIX [Suspect]
     Active Substance: FENTANYL
     Indication: PRODUCT USED FOR UNKNOWN INDICATION
     Route: 062
  3. DUROGESIC MATRIX [Suspect]
     Active Substance: FENTANYL

REACTIONS (3)
  - Withdrawal syndrome [Recovered/Resolved]
  - Product adhesion issue [Unknown]
  - Seizure [Recovered/Resolved]
